FAERS Safety Report 9002122 (Version 1)
Quarter: 2013Q1

REPORT INFORMATION
  Report Type: Spontaneous
  Country: US (occurrence: None)
  Receive Date: 20130103
  Receipt Date: 20130103
  Transmission Date: 20140127
  Serious: Yes (Other)
  Sender: FDA-Public Use
  Company Number: None

PATIENT
  Age: 44 Year
  Sex: Female
  Weight: 95.26 kg

DRUGS (3)
  1. TRAZODONE [Suspect]
     Indication: INSOMNIA
     Dates: start: 20121122
  2. ZIPRASIDONE [Suspect]
     Indication: HALLUCINATION
     Dates: start: 20121201
  3. ZIPRASIDONE [Suspect]
     Indication: HALLUCINATION, AUDITORY
     Dates: start: 20121201

REACTIONS (4)
  - Anger [None]
  - Nervousness [None]
  - Mania [None]
  - Depression [None]
